FAERS Safety Report 13868348 (Version 3)
Quarter: 2017Q4

REPORT INFORMATION
  Report Type: Spontaneous
  Country: US (occurrence: US)
  Receive Date: 20170815
  Receipt Date: 20171226
  Transmission Date: 20180320
  Serious: No
  Sender: FDA-Public Use
  Company Number: US-ASTRAZENECA-2017SE82044

PATIENT
  Age: 87 Year
  Sex: Female
  Weight: 48 kg

DRUGS (1)
  1. NEXIUM 24HR [Suspect]
     Active Substance: ESOMEPRAZOLE MAGNESIUM
     Indication: HIATUS HERNIA
     Dosage: UNK, ONCE DAY (BEFORE BREAKFAST IN THE MORNING)
     Route: 048

REACTIONS (3)
  - Drug intolerance [Unknown]
  - Abnormal faeces [Unknown]
  - Gluten sensitivity [Unknown]
